FAERS Safety Report 4429269-4 (Version None)
Quarter: 2004Q3

REPORT INFORMATION
  Report Type: 
  Country: None (occurrence: None)
  Receive Date: 20040818
  Receipt Date: 20040818
  Transmission Date: 20050211
  Serious: Yes (Hospitalization)
  Sender: FDA-Public Use
  Company Number: None

PATIENT
  Age: 31 Year
  Sex: Female
  Weight: 82 kg

DRUGS (7)
  1. CLONAZEPAM [Suspect]
     Indication: ANXIETY
     Dosage: 0.5 MG BID ORAL
     Route: 048
     Dates: start: 20040226, end: 20040303
  2. CLONAZEPAM [Suspect]
     Indication: INSOMNIA
     Dosage: 0.5 MG BID ORAL
     Route: 048
     Dates: start: 20040226, end: 20040303
  3. ZOLPIDEM 5 MG [Suspect]
     Indication: INSOMNIA
     Dosage: 2.5-5 MG QHS PRN ORAL
     Route: 048
     Dates: start: 20040220, end: 20040226
  4. CITALOPRAM [Concomitant]
  5. RISPERIDONE [Concomitant]
  6. CALCIUM CARBONATE [Concomitant]
  7. IBUPROFEN [Concomitant]

REACTIONS (3)
  - DEPRESSED LEVEL OF CONSCIOUSNESS [None]
  - MEDICATION ERROR [None]
  - OVERDOSE [None]
